FAERS Safety Report 20497278 (Version 9)
Quarter: 2023Q4

REPORT INFORMATION
  Report Type: Spontaneous
  Country: US (occurrence: US)
  Receive Date: 20220221
  Receipt Date: 20231101
  Transmission Date: 20240109
  Serious: Yes (Other)
  Sender: FDA-Public Use
  Company Number: US-PFIZER INC-202101682071

PATIENT
  Age: 65 Year
  Sex: Female
  Weight: 88.45 kg

DRUGS (2)
  1. XELJANZ [Suspect]
     Active Substance: TOFACITINIB CITRATE
     Dosage: 5 MG
     Dates: start: 2020
  2. XELJANZ [Suspect]
     Active Substance: TOFACITINIB CITRATE
     Dosage: 5 MG, 2X/DAY
     Route: 048
     Dates: start: 2020, end: 20220526

REACTIONS (9)
  - Acute kidney injury [Not Recovered/Not Resolved]
  - Spinal operation [Unknown]
  - Urinary tract infection [Not Recovered/Not Resolved]
  - Product administration error [Unknown]
  - Arthritis [Unknown]
  - Illness [Unknown]
  - Pruritus [Unknown]
  - Bladder spasm [Unknown]
  - Drug hypersensitivity [Unknown]

NARRATIVE: CASE EVENT DATE: 20211130
